FAERS Safety Report 10553809 (Version 1)
Quarter: 2014Q4

REPORT INFORMATION
  Report Type: Spontaneous
  Country: US (occurrence: None)
  Receive Date: 20141029
  Receipt Date: 20141029
  Transmission Date: 20150529
  Serious: No
  Sender: FDA-Public Use
  Company Number: None

PATIENT
  Age: 60 Year
  Sex: Male

DRUGS (7)
  1. MELANTOIN [Concomitant]
  2. SHARK LIVER OIL [Concomitant]
     Active Substance: SHARK LIVER OIL
  3. LOVASTATIN. [Concomitant]
     Active Substance: LOVASTATIN
  4. CAPECITABINE. [Suspect]
     Active Substance: CAPECITABINE
     Indication: HEPATIC CANCER
     Dosage: 3000MG, DAILY 7 DAYS ON 7 DAYS OF, ORAL
     Route: 048
     Dates: start: 20140702
  5. ASPIRIN. [Concomitant]
     Active Substance: ASPIRIN
  6. SESAME SEED OIL-UNKNOWN [Concomitant]
  7. PHOPSPHOROUS [Concomitant]

REACTIONS (1)
  - Internal haemorrhage [None]

NARRATIVE: CASE EVENT DATE: 20141027
